FAERS Safety Report 7825293-X (Version None)
Quarter: 2011Q4

REPORT INFORMATION
  Report Type: 
  Country: None (occurrence: None)
  Receive Date: 20111019
  Receipt Date: 20111012
  Transmission Date: 20120403
  Serious: Yes (Hospitalization)
  Sender: FDA-Public Use
  Company Number: CA-GLAXOSMITHKLINE-A0949439A

PATIENT
  Age: 63 Year
  Sex: Female
  Weight: 88 kg

DRUGS (2)
  1. LAMOTRIGINE [Suspect]
     Indication: CONVULSION
     Route: 048
  2. BLINDED TRIAL MEDICATION [Concomitant]
     Indication: OSTEOARTHRITIS
     Route: 048
     Dates: start: 20071023

REACTIONS (2)
  - ROAD TRAFFIC ACCIDENT [None]
  - DIZZINESS [None]
